FAERS Safety Report 14159302 (Version 9)
Quarter: 2018Q3

REPORT INFORMATION
  Report Type: Report from Study
  Country: JP (occurrence: JP)
  Receive Date: 20171106
  Receipt Date: 20180802
  Transmission Date: 20181010
  Serious: Yes (Other)
  Sender: FDA-Public Use
  Company Number: JP-BRISTOL-MYERS SQUIBB COMPANY-BMS-2015-087480

PATIENT
  Age: 52 Year
  Sex: Male

DRUGS (3)
  1. NIVOLUMAB [Suspect]
     Active Substance: NIVOLUMAB
     Indication: MALIGNANT MELANOMA
     Dosage: 2 MG/KG (116 MG), Q3WK
     Route: 041
     Dates: start: 20141113
  2. NIVOLUMAB [Suspect]
     Active Substance: NIVOLUMAB
     Indication: PRODUCT USED FOR UNKNOWN INDICATION
     Dosage: 2 MG/KG (97.6MG) Q3WK
     Route: 041
     Dates: end: 20170623
  3. YERVOY [Suspect]
     Active Substance: IPILIMUMAB
     Indication: MALIGNANT MELANOMA
     Dosage: 3 MG/KG (162MG) UNK
     Route: 041
     Dates: start: 20160114, end: 20160614

REACTIONS (8)
  - Pneumonia bacterial [Recovered/Resolved]
  - Hypothyroidism [Recovered/Resolved]
  - Pyrexia [Recovered/Resolved]
  - Tri-iodothyronine free decreased [Recovering/Resolving]
  - Liver disorder [Recovered/Resolved]
  - Hypoparathyroidism [Recovered/Resolved]
  - Vitiligo [Not Recovered/Not Resolved]
  - Malignant neoplasm progression [Unknown]

NARRATIVE: CASE EVENT DATE: 20150202
